FAERS Safety Report 8433730-5 (Version None)
Quarter: 2012Q2

REPORT INFORMATION
  Report Type: 
  Country: None (occurrence: None)
  Receive Date: 20120613
  Receipt Date: 20120601
  Transmission Date: 20120825
  Serious: Yes (Hospitalization, Other)
  Sender: FDA-Public Use
  Company Number: US-ELI_LILLY_AND_COMPANY-US201206001435

PATIENT
  Sex: Male

DRUGS (1)
  1. HUMULIN 70/30 [Suspect]
     Indication: DIABETES MELLITUS
     Dosage: 64 U, QD

REACTIONS (5)
  - SKIN INFECTION [None]
  - CEREBROVASCULAR ACCIDENT [None]
  - SKIN HAEMORRHAGE [None]
  - SKIN INJURY [None]
  - TOE AMPUTATION [None]
